FAERS Safety Report 12393937 (Version 1)
Quarter: 2016Q2

REPORT INFORMATION
  Report Type: Spontaneous
  Country: US (occurrence: US)
  Receive Date: 20160523
  Receipt Date: 20160523
  Transmission Date: 20160815
  Serious: No
  Sender: FDA-Public Use
  Company Number: US-LNK INTERNATIONAL, INC.-1052623

PATIENT
  Sex: Male

DRUGS (1)
  1. FAMILY DOLLAR ASPIRIN 325 MG WHITE TABLETS [Suspect]
     Active Substance: ASPIRIN

REACTIONS (2)
  - Blood pressure increased [None]
  - Dyspnoea [None]
